FAERS Safety Report 9084739 (Version 1)
Quarter: 2013Q1

REPORT INFORMATION
  Report Type: Report from Study
  Country: US (occurrence: US)
  Receive Date: 20130131
  Receipt Date: 20130131
  Transmission Date: 20140127
  Serious: No
  Sender: FDA-Public Use
  Company Number: US-ABBOTT-12P-163-0990814-00

PATIENT
  Sex: Female
  Weight: 68.1 kg

DRUGS (1)
  1. HUMIRA [Suspect]
     Indication: PSORIASIS
     Dates: start: 201204

REACTIONS (4)
  - Chromaturia [Recovered/Resolved]
  - Urinary tract infection [Recovered/Resolved]
  - Fungal infection [Recovered/Resolved]
  - Fungal infection [Recovered/Resolved]
